FAERS Safety Report 14191539 (Version 2)
Quarter: 2021Q3

REPORT INFORMATION
  Report Type: Report from Study
  Country: CA (occurrence: CA)
  Receive Date: 20171115
  Receipt Date: 20210723
  Transmission Date: 20211014
  Serious: Yes (Other)
  Sender: FDA-Public Use
  Company Number: CA-JNJFOC-20170702432

PATIENT
  Age: 58 Year
  Sex: Male
  Weight: 64.7 kg

DRUGS (5)
  1. METHOTREXATE. [Concomitant]
     Active Substance: METHOTREXATE
     Route: 048
  2. SIMPONI [Suspect]
     Active Substance: GOLIMUMAB
     Dosage: 19TH DOSE ON 11?MAY?2017
     Route: 042
  3. METHOTREXATE. [Concomitant]
     Active Substance: METHOTREXATE
     Route: 048
  4. SIMPONI [Suspect]
     Active Substance: GOLIMUMAB
     Indication: RHEUMATOID ARTHRITIS
     Route: 042
     Dates: start: 20140904
  5. ACIDE FOLIQUE [Concomitant]
     Active Substance: FOLIC ACID
     Route: 048

REACTIONS (2)
  - Penile cancer [Not Recovered/Not Resolved]
  - Gastroenteritis [Recovering/Resolving]

NARRATIVE: CASE EVENT DATE: 20170702
